FAERS Safety Report 9318119 (Version 1)
Quarter: 2013Q2

REPORT INFORMATION
  Report Type: Spontaneous
  Country: TC (occurrence: None)
  Receive Date: 20130524
  Receipt Date: 20130524
  Transmission Date: 20140414
  Serious: Yes (Hospitalization)
  Sender: FDA-Public Use
  Company Number: FK201301632

PATIENT
  Age: 55 Year
  Sex: Female

DRUGS (4)
  1. DEXAMETHASONE [Suspect]
     Indication: ENDOPHTHALMITIS
  2. VANCOMYCIN [Concomitant]
  3. CEFTAZIDIME [Concomitant]
  4. AMIKACIN [Concomitant]

REACTIONS (6)
  - Endophthalmitis [None]
  - Disease progression [None]
  - Incorrect route of drug administration [None]
  - Periorbital cellulitis [None]
  - Hypopyon [None]
  - Post procedural cellulitis [None]
